FAERS Safety Report 22633336 (Version 1)
Quarter: 2023Q2

REPORT INFORMATION
  Report Type: Spontaneous
  Country: IT (occurrence: IT)
  Receive Date: 20230623
  Receipt Date: 20230623
  Transmission Date: 20230721
  Serious: Yes (Hospitalization, Other)
  Sender: FDA-Public Use
  Company Number: None

PATIENT
  Age: 83 Year
  Sex: Female

DRUGS (2)
  1. LENALIDOMIDE [Suspect]
     Active Substance: LENALIDOMIDE
     Indication: Product used for unknown indication
     Dosage: GG 1-21, 1 CP/DIE, OGNI 28 GG
     Dates: start: 20230320, end: 20230502
  2. TAFASITAMAB [Suspect]
     Active Substance: TAFASITAMAB
     Indication: B-cell lymphoma recurrent
     Dosage: SCHEMA TAFASITAMAB GG 1.8.15.22.29; POI 1.8.15.22
     Route: 042
     Dates: start: 20230320, end: 20230502

REACTIONS (1)
  - Clostridial sepsis [Recovered/Resolved]

NARRATIVE: CASE EVENT DATE: 20230502
